FAERS Safety Report 25286374 (Version 1)
Quarter: 2025Q2

REPORT INFORMATION
  Report Type: Spontaneous
  Country: AU (occurrence: AU)
  Receive Date: 20250509
  Receipt Date: 20250509
  Transmission Date: 20250717
  Serious: Yes (Other)
  Sender: RANBAXY
  Company Number: AU-SUN PHARMACEUTICAL INDUSTRIES LTD-2025R1-506953

PATIENT

DRUGS (2)
  1. TOBRAMYCIN [Suspect]
     Active Substance: TOBRAMYCIN
     Indication: Cystic fibrosis
     Route: 042
  2. GENTAMICIN [Suspect]
     Active Substance: GENTAMICIN
     Indication: Cystic fibrosis
     Route: 042

REACTIONS (3)
  - Ototoxicity [Unknown]
  - Hypoacusis [Unknown]
  - Off label use [Unknown]
